FAERS Safety Report 9926869 (Version 1)
Quarter: 2014Q1

REPORT INFORMATION
  Report Type: Spontaneous
  Country: US (occurrence: US)
  Receive Date: 20140226
  Receipt Date: 20140226
  Transmission Date: 20141002
  Serious: No
  Sender: FDA-Public Use
  Company Number: US-AMGEN-USASP2013084691

PATIENT
  Age: 80 Year
  Sex: Male

DRUGS (7)
  1. ENBREL [Suspect]
     Indication: PRODUCT USED FOR UNKNOWN INDICATION
     Dosage: 50 MG, 2 TIMES/WK
     Route: 058
  2. METOPROLOL [Concomitant]
     Dosage: 100 MG, UNK
  3. COUMADIN                           /00014802/ [Concomitant]
     Dosage: 10 MG, UNK
  4. FINASTERID [Concomitant]
     Dosage: 1 MG, UNK
  5. FOLIC ACID [Concomitant]
     Dosage: UNK
  6. LIPITOR [Concomitant]
     Dosage: 10 MG, UNK
  7. ALFUZOSIN [Concomitant]
     Dosage: 10 MG, UNK

REACTIONS (1)
  - Drug effect incomplete [Unknown]
